FAERS Safety Report 17156822 (Version 1)
Quarter: 2019Q4

REPORT INFORMATION
  Report Type: Spontaneous
  Country: US (occurrence: US)
  Receive Date: 20191120
  Receipt Date: 20191120
  Transmission Date: 20200122
  Serious: Yes (Life-Threatening, Hospitalization, Disabling)
  Sender: FDA-Public Use
  Company Number: None

PATIENT
  Age: 72 Year
  Sex: Male
  Weight: 99.79 kg

DRUGS (14)
  1. OZEMPIC [Suspect]
     Active Substance: SEMAGLUTIDE
     Indication: BLOOD GLUCOSE INCREASED
     Dosage: ?          QUANTITY:1 DF DOSAGE FORM;?
     Dates: start: 20190820
  2. CARVEDILOL. [Concomitant]
     Active Substance: CARVEDILOL
  3. LISINOPRIL. [Concomitant]
     Active Substance: LISINOPRIL
  4. VITAMIN D3 [Concomitant]
     Active Substance: CHOLECALCIFEROL
  5. BZ CRIBOFCAVIN [Concomitant]
  6. ALLOPURINOL. [Concomitant]
     Active Substance: ALLOPURINOL
  7. BRILINTA [Concomitant]
     Active Substance: TICAGRELOR
  8. VASCEPA [Concomitant]
     Active Substance: ICOSAPENT ETHYL
  9. BABY ASPIRIN [Concomitant]
     Active Substance: ASPIRIN
  10. VITAMIN C [Concomitant]
     Active Substance: ASCORBIC ACID
  11. REPATHA [Concomitant]
     Active Substance: EVOLOCUMAB
  12. MAGNESIUM OXIDE. [Concomitant]
     Active Substance: MAGNESIUM OXIDE
  13. FINASTERIDE. [Concomitant]
     Active Substance: FINASTERIDE
  14. ALPHA LIPOIC ACID [Concomitant]
     Active Substance: .ALPHA.-LIPOIC ACID

REACTIONS (11)
  - Irritability [None]
  - Decreased appetite [None]
  - Constipation [None]
  - Asthenia [None]
  - Fall [None]
  - Urine odour abnormal [None]
  - Diarrhoea [None]
  - Cerebrovascular accident [None]
  - Nausea [None]
  - Fatigue [None]
  - Lethargy [None]

NARRATIVE: CASE EVENT DATE: 20190920
